FAERS Safety Report 25274210 (Version 1)
Quarter: 2025Q2

REPORT INFORMATION
  Report Type: Spontaneous
  Country: US (occurrence: None)
  Receive Date: 20250506
  Receipt Date: 20250506
  Transmission Date: 20250717
  Serious: Yes (Hospitalization)
  Sender: FDA-CTU
  Company Number: None

PATIENT
  Age: 59 Year
  Sex: Female

DRUGS (3)
  1. GAMMAGARD S/D [Suspect]
     Active Substance: HUMAN IMMUNOGLOBULIN G
     Indication: Immunodeficiency common variable
     Dosage: OTHER FREQUENCY : EVERY 4 WEEKS;?
     Route: 042
     Dates: start: 20241023
  2. GAMMAGARD S/D [Suspect]
     Active Substance: HUMAN IMMUNOGLOBULIN G
     Indication: Immunodeficiency common variable
     Dosage: OTHER FREQUENCY : EVERY 4 WEEKS;?
     Route: 042
     Dates: start: 20241023
  3. DUPIXENT [Suspect]
     Active Substance: DUPILUMAB

REACTIONS (7)
  - Hypoxia [None]
  - COVID-19 [None]
  - Urinary tract infection [None]
  - Asthma [None]
  - Therapy interrupted [None]
  - Poor venous access [None]
  - Thrombosis [None]

NARRATIVE: CASE EVENT DATE: 20250421
